FAERS Safety Report 23905263 (Version 4)
Quarter: 2025Q3

REPORT INFORMATION
  Report Type: Spontaneous
  Country: US (occurrence: US)
  Receive Date: 20240527
  Receipt Date: 20250930
  Transmission Date: 20251021
  Serious: No
  Sender: SANOFI AVENTIS
  Company Number: US-SA-SAC00000000408133

PATIENT
  Age: 63 Year
  Sex: Female

DRUGS (1)
  1. DUPIXENT [Suspect]
     Active Substance: DUPILUMAB
     Indication: Dermatitis atopic
     Dosage: 300 MG, QOW
     Route: 058
     Dates: start: 2024

REACTIONS (11)
  - Flushing [Unknown]
  - Inflammation [Unknown]
  - Condition aggravated [Unknown]
  - Erythema [Unknown]
  - Eye pruritus [Unknown]
  - Injection site reaction [Unknown]
  - Eye irritation [Unknown]
  - Blepharitis [Recovered/Resolved]
  - Condition aggravated [Recovered/Resolved]
  - Eye inflammation [Recovered/Resolved]
  - Rash [Recovered/Resolved]

NARRATIVE: CASE EVENT DATE: 20240101
